FAERS Safety Report 10036142 (Version 3)
Quarter: 2014Q2

REPORT INFORMATION
  Report Type: Spontaneous
  Country: JP (occurrence: JP)
  Receive Date: 20140325
  Receipt Date: 20140401
  Transmission Date: 20141212
  Serious: Yes (Life-Threatening, Hospitalization)
  Sender: FDA-Public Use
  Company Number: JP-PFIZER INC-2013312956

PATIENT
  Age: 65 Year
  Sex: Female
  Weight: 62.35 kg

DRUGS (15)
  1. SUTENT [Suspect]
     Indication: METASTATIC RENAL CELL CARCINOMA
     Dosage: 37.5 MG, 1X/DAY
     Route: 048
     Dates: start: 20130704, end: 20130713
  2. METGLUCO [Concomitant]
     Indication: DIABETES MELLITUS
     Dosage: 250 MG, 3X/DAY
     Route: 048
     Dates: start: 20130524, end: 20130712
  3. MAG-LAX [Concomitant]
     Dosage: 330 MG, 3X/DAY
     Route: 048
     Dates: start: 20130524, end: 20130713
  4. LAC B N [Concomitant]
     Dosage: 1 G, 3X/DAY
     Route: 048
     Dates: start: 20130524, end: 20130713
  5. GASTER [Concomitant]
     Dosage: 20 MG, 1X/DAY
     Route: 048
     Dates: start: 20130524, end: 20130713
  6. MICARDIS [Concomitant]
     Indication: HYPERTENSION
     Dosage: 40 MG, 1X/DAY
     Route: 048
     Dates: start: 20130524, end: 20130713
  7. NORVASC [Concomitant]
     Indication: HYPERTENSION
     Dosage: 5 MG, 1X/DAY
     Route: 048
     Dates: start: 20130524, end: 20130713
  8. RENIVACE [Concomitant]
     Indication: HYPERTENSION
     Dosage: 5 MG, 1X/DAY
     Route: 048
     Dates: start: 20130524, end: 20130713
  9. JANUVIA [Concomitant]
     Indication: DIABETES MELLITUS
     Dosage: 50 MG, 1X/DAY
     Route: 048
     Dates: start: 20130524, end: 20130712
  10. CRESTOR [Concomitant]
     Indication: DYSLIPIDAEMIA
     Dosage: 2.5 MG, 1X/DAY
     Route: 048
     Dates: start: 20130524, end: 20130713
  11. FERROMIA [Concomitant]
     Indication: ANAEMIA
     Dosage: 50 MG, 1X/DAY
     Route: 048
     Dates: start: 20130524, end: 20130713
  12. RANMARK [Concomitant]
     Indication: METASTASES TO BONE
     Dosage: 120 MG, 1X/DAY
     Route: 058
     Dates: start: 20130614
  13. DENOTAS CHEWABLE [Concomitant]
     Dosage: UNK
     Route: 048
     Dates: start: 20130625
  14. EBRANTIL [Concomitant]
     Indication: NEUROGENIC BLADDER
     Dosage: 15 MG, 2X/DAY
     Route: 048
     Dates: start: 20130705
  15. LOPEMIN [Concomitant]
     Indication: DIARRHOEA
     Dosage: 1 MG, 1X/DAY
     Route: 048
     Dates: start: 20130713, end: 20130717

REACTIONS (4)
  - Pericardial effusion [Not Recovered/Not Resolved]
  - Disseminated intravascular coagulation [Recovered/Resolved]
  - Decreased appetite [Recovered/Resolved]
  - Pyrexia [Recovered/Resolved]
